FAERS Safety Report 16138994 (Version 1)
Quarter: 2019Q2

REPORT INFORMATION
  Report Type: Spontaneous
  Country: FR (occurrence: FR)
  Receive Date: 20190401
  Receipt Date: 20190401
  Transmission Date: 20190711
  Serious: Yes (Hospitalization, Other)
  Sender: FDA-Public Use
  Company Number: FR-AUROBINDO-AUR-APL-2019-017002

PATIENT

DRUGS (2)
  1. CARBOPLATIN. [Suspect]
     Active Substance: CARBOPLATIN
     Indication: LUNG CANCER METASTATIC
     Dosage: 427.18 MILLIGRAM, (ADMINISTRATION ON 12/02 AND 05/03)
     Route: 034
     Dates: start: 20190212, end: 20190305
  2. ETOPOSIDE. [Suspect]
     Active Substance: ETOPOSIDE
     Indication: LUNG CANCER METASTATIC
     Dosage: 480 MILLIGRAM, (ADMINISTRATION ON 12/02, 13/02, 14/02 AND 05/03 AND 06/03)
     Route: 034
     Dates: start: 20190212, end: 20190306

REACTIONS (3)
  - Administration site extravasation [Recovered/Resolved]
  - Dyspnoea [Unknown]
  - Thoracic cavity drainage [Recovered/Resolved]

NARRATIVE: CASE EVENT DATE: 201902
